FAERS Safety Report 13382978 (Version 3)
Quarter: 2017Q3

REPORT INFORMATION
  Report Type: Report from Study
  Country: DK (occurrence: NO)
  Receive Date: 20170329
  Receipt Date: 20170823
  Transmission Date: 20171127
  Serious: Yes (Hospitalization, Other)
  Sender: FDA-Public Use
  Company Number: DK-ASTRAZENECA-2017SE30375

PATIENT
  Age: 86 Year
  Sex: Male
  Weight: 87 kg

DRUGS (18)
  1. COLECALCIFEROL [Concomitant]
     Active Substance: CHOLECALCIFEROL
     Dates: start: 2014
  2. DALTEPARIN SODIUM [Concomitant]
     Active Substance: DALTEPARIN SODIUM
     Dates: start: 20141203
  3. LAXOBERAL [Concomitant]
     Active Substance: SODIUM PICOSULFATE
     Dates: start: 20060105
  4. REMERON [Concomitant]
     Active Substance: MIRTAZAPINE
     Dates: start: 20151231
  5. BURINEX [Concomitant]
     Active Substance: BUMETANIDE
  6. ENTOCORT [Concomitant]
     Active Substance: BUDESONIDE
     Dates: start: 20150903
  7. SIMVASTATIN. [Concomitant]
     Active Substance: SIMVASTATIN
     Dates: start: 1988
  8. OMNIC [Concomitant]
     Active Substance: TAMSULOSIN HYDROCHLORIDE
     Dates: start: 2002
  9. CALOGEN [Concomitant]
     Dates: start: 20141203
  10. TRIATEC [Concomitant]
     Active Substance: RAMIPRIL
     Dates: start: 20151231
  11. ADALAT [Concomitant]
     Active Substance: NIFEDIPINE
     Dates: start: 20141202
  12. SOMAC [Concomitant]
     Active Substance: PANTOPRAZOLE SODIUM
     Dates: start: 20141203
  13. PLAVIX [Concomitant]
     Active Substance: CLOPIDOGREL BISULFATE
     Dates: start: 20140903
  14. IMOVANE [Concomitant]
     Active Substance: ZOPICLONE
     Dates: start: 20141209
  15. LACTULOSE. [Concomitant]
     Active Substance: LACTULOSE
     Dates: start: 20160105
  16. ZOLADEX [Suspect]
     Active Substance: GOSERELIN ACETATE
     Indication: PROSTATE CANCER
     Route: 058
     Dates: start: 20120228
  17. HIPREX [Concomitant]
     Active Substance: METHENAMINE HIPPURATE
     Dates: start: 2015
  18. SERETIDE [Concomitant]
     Active Substance: FLUTICASONE PROPIONATE\SALMETEROL XINAFOATE
     Route: 055
     Dates: start: 20140818

REACTIONS (3)
  - Pulmonary embolism [Recovered/Resolved]
  - Ankle fracture [Recovered/Resolved with Sequelae]
  - Atrial fibrillation [Not Recovered/Not Resolved]

NARRATIVE: CASE EVENT DATE: 2013
